FAERS Safety Report 4287956-5 (Version None)
Quarter: 2004Q1

REPORT INFORMATION
  Report Type: 
  Country: None (occurrence: None)
  Receive Date: 20040205
  Receipt Date: 20040122
  Transmission Date: 20041129
  Serious: Yes (Hospitalization)
  Sender: FDA-Public Use
  Company Number: 235043

PATIENT

DRUGS (1)
  1. GLUCAGON [Suspect]
     Indication: DIABETES MELLITUS

REACTIONS (2)
  - INJURY ASPHYXIATION [None]
  - LOCALISED OEDEMA [None]
